FAERS Safety Report 7110426-3 (Version None)
Quarter: 2010Q4

REPORT INFORMATION
  Report Type: 
  Country: None (occurrence: None)
  Receive Date: 20101112
  Receipt Date: 20101027
  Transmission Date: 20110411
  Serious: Yes (Hospitalization, Disabling)
  Sender: FDA-Public Use
  Company Number: 1-17290372

PATIENT
  Age: 45 Year
  Sex: Female

DRUGS (14)
  1. QUININE SULFATE [Suspect]
     Indication: MUSCLE SPASMS
     Dosage: AS NEEDED, ORAL
     Route: 048
     Dates: start: 20070706, end: 20081001
  2. QUININE SULFATE [Suspect]
     Indication: MUSCLE SPASMS
     Dosage: NIGHTLY X 1 YR, THEN PRN, ORAL
     Route: 048
     Dates: start: 19800101, end: 20020101
  3. QUININE SULFATE [Suspect]
     Indication: MUSCLE SPASMS
     Dosage: AS NEEDED
     Dates: start: 20020912, end: 20040128
  4. QUININE SULFATE [Suspect]
     Indication: MUSCLE SPASMS
     Dosage: AS NEEDED
     Dates: start: 20040722, end: 20060902
  5. QUININE SULFATE [Suspect]
     Indication: MUSCLE SPASMS
     Dosage: AS NEEDED
     Dates: start: 20061113, end: 20070208
  6. QUININE SULFATE [Suspect]
     Indication: MUSCLE SPASMS
     Dosage: AS NEEDED
     Dates: start: 20080418, end: 20080714
  7. PRINIVIL [Concomitant]
  8. LORTAB [Concomitant]
  9. METANZ [Concomitant]
  10. CYANOCOBALAMIN [Concomitant]
  11. VITAMIN D [Concomitant]
  12. ELAVIL [Concomitant]
  13. FOSINOPRIL SODIUM [Concomitant]
  14. FUROSEMIDE [Concomitant]

REACTIONS (18)
  - ARTHRITIS [None]
  - BACK INJURY [None]
  - BLOOD CHOLESTEROL INCREASED [None]
  - BLOOD TRIGLYCERIDES INCREASED [None]
  - COAGULOPATHY [None]
  - DIABETES MELLITUS [None]
  - DIALYSIS [None]
  - DRUG HYPERSENSITIVITY [None]
  - HAEMORRHAGIC DISORDER [None]
  - HYPOGLYCAEMIA [None]
  - NEOPLASM MALIGNANT [None]
  - PAIN [None]
  - RENAL DISORDER [None]
  - RENAL FAILURE CHRONIC [None]
  - RESTLESS LEGS SYNDROME [None]
  - THROMBOCYTOPENIA [None]
  - THYROID DISORDER [None]
  - UNEVALUABLE EVENT [None]
